FAERS Safety Report 7856394 (Version 3)
Quarter: 2016Q1

REPORT INFORMATION
  Report Type: Report from Study
  Country: JP (occurrence: JP)
  Receive Date: 20110315
  Receipt Date: 20160120
  Transmission Date: 20160526
  Serious: Yes (Death, Life-Threatening)
  Sender: FDA-Public Use
  Company Number: JP-PFIZER INC-2011052296

PATIENT
  Age: 79 Year
  Sex: Male
  Weight: 40 kg

DRUGS (11)
  1. ZOSYN [Suspect]
     Active Substance: PIPERACILLIN SODIUM\TAZOBACTAM SODIUM
     Indication: PNEUMONIA
     Dosage: 4.5 G, 4X/DAY
     Route: 041
     Dates: start: 20110226, end: 20110302
  2. CIPROXAN [Suspect]
     Active Substance: CIPROFLOXACIN
     Indication: PNEUMONIA
     Dosage: 300 MG/DAY
     Route: 042
     Dates: start: 20110221, end: 20110225
  3. GASTER [Concomitant]
     Active Substance: FAMOTIDINE
     Indication: PROPHYLAXIS
     Dosage: 2A/DAY
     Route: 042
     Dates: start: 20110222, end: 20110302
  4. ELEMENMIC [Concomitant]
     Active Substance: CUPRIC SULFATE\FERRIC CHLORIDE\MANGANESE CHLORIDE\POTASSIUM IODIDE\ZINC SULFATE
     Dosage: 1 A/DAY
     Route: 042
     Dates: start: 20110226, end: 20110302
  5. MICAFUNGIN [Suspect]
     Active Substance: MICAFUNGIN
     Indication: PNEUMONIA
     Dosage: 150 MG /DAY
     Route: 042
     Dates: start: 20110222, end: 20110302
  6. UNASYN [Suspect]
     Active Substance: AMPICILLIN SODIUM\SULBACTAM SODIUM
     Indication: PNEUMONIA
     Dosage: 3 G/DAY
     Route: 042
     Dates: start: 20110217, end: 20110221
  7. BIAPENEM [Suspect]
     Active Substance: BIAPENEM
     Indication: PNEUMONIA
     Dosage: 0.6 G/DAY
     Route: 042
     Dates: start: 20110220, end: 20110225
  8. ELASPOL [Suspect]
     Active Substance: SIVELESTAT SODIUM
     Dosage: 300 MG/DAY
     Route: 042
     Dates: start: 20110222, end: 20110228
  9. NEOPHAGEN [Concomitant]
     Active Substance: GLYCYRRHIZIN
     Dosage: 40 ML PER DAY
     Dates: start: 20110228
  10. BAKTAR [Concomitant]
     Active Substance: SULFAMETHOXAZOLE\TRIMETHOPRIM
     Indication: PROPHYLAXIS
     Dosage: 2 MG/DAY
     Route: 048
     Dates: start: 20110225, end: 20110302
  11. FULCALIQ [Concomitant]
     Active Substance: AMINO ACIDS\CARBOHYDRATES\ELECTROLYTES NOS\VITAMINS
     Dosage: 1003 ML/DAY
     Route: 041
     Dates: start: 20110222, end: 20110302

REACTIONS (3)
  - Hepatic function abnormal [Unknown]
  - Pneumonia [Fatal]
  - Disseminated intravascular coagulation [Fatal]

NARRATIVE: CASE EVENT DATE: 20110302
